FAERS Safety Report 5425412-9 (Version None)
Quarter: 2007Q3

REPORT INFORMATION
  Report Type: 
  Country: None (occurrence: None)
  Receive Date: 20070824
  Receipt Date: 20070822
  Transmission Date: 20080115
  Serious: Yes (Death)
  Sender: FDA-Public Use
  Company Number: US-BOEHRINGER INGELHEIM PHARMACEUTICALS, INC.-2007-BP-03431BP

PATIENT
  Age: 77 Year
  Sex: Female
  Weight: 87 kg

DRUGS (14)
  1. MIRAPEX [Suspect]
     Indication: RESTLESS LEGS SYNDROME
     Route: 048
     Dates: start: 20050907, end: 20050908
  2. HUMULIN N [Concomitant]
  3. HUMALOG [Concomitant]
  4. CELEBREX [Concomitant]
  5. ESTRACE [Concomitant]
  6. GLUCOPHAGE [Concomitant]
  7. SYNTHROID [Concomitant]
  8. FUROSEMIDE [Concomitant]
  9. POTASSIUM CHLORIDE [Concomitant]
  10. NEURONTIN [Concomitant]
  11. ASPIRIN [Concomitant]
  12. CLONIDINE [Concomitant]
  13. GLYBURIDE [Concomitant]
  14. VICODIN [Concomitant]

REACTIONS (4)
  - APNOEA [None]
  - CONVULSION [None]
  - DYSPNOEA [None]
  - HALLUCINATION [None]
